FAERS Safety Report 9311622 (Version 1)
Quarter: 2013Q2

REPORT INFORMATION
  Report Type: Report from Study
  Country: ES (occurrence: ES)
  Receive Date: 20130528
  Receipt Date: 20130528
  Transmission Date: 20140414
  Serious: Yes (Hospitalization)
  Sender: FDA-Public Use
  Company Number: ES-SANOFI-AVENTIS-2013SA050561

PATIENT
  Age: 49 Year
  Sex: Male

DRUGS (6)
  1. FUROSEMIDE [Suspect]
     Indication: ASCITES
     Route: 048
     Dates: start: 20120321, end: 20120412
  2. TACROLIMUS [Suspect]
     Indication: AUTOIMMUNE HEPATITIS
     Route: 048
     Dates: start: 20120330, end: 20120412
  3. SPIRONOLACTONE [Suspect]
     Indication: ASCITES
     Route: 048
     Dates: start: 20120330, end: 20120412
  4. PREDNISONA [Concomitant]
     Indication: AUTOIMMUNE HEPATITIS
     Route: 048
     Dates: start: 20120321, end: 20120412
  5. SEPTRIN FORTE [Concomitant]
     Indication: PROPHYLAXIS
     Dosage: STRENGTH: 160 MG/800 MG
     Route: 048
     Dates: start: 20120314, end: 20120412
  6. LEDERFOLIN [Concomitant]
     Indication: PROPHYLAXIS
     Dosage: STRENGTH: 15 MG
     Route: 048
     Dates: start: 20120314, end: 20120412

REACTIONS (3)
  - Renal failure acute [Recovered/Resolved]
  - Hyponatraemia [Recovered/Resolved]
  - Hyperkalaemia [Recovered/Resolved]
